FAERS Safety Report 16034150 (Version 2)
Quarter: 2019Q3

REPORT INFORMATION
  Report Type: Spontaneous
  Country: US (occurrence: US)
  Receive Date: 20190305
  Receipt Date: 20190726
  Transmission Date: 20191004
  Serious: Yes (Other)
  Sender: FDA-Public Use
  Company Number: US-009507513-1902USA012311

PATIENT
  Age: 29 Year
  Sex: Female
  Weight: 100.68 kg

DRUGS (2)
  1. NEXPLANON [Suspect]
     Active Substance: ETONOGESTREL
     Dosage: 1 IMPLANT (68 MILLIGRAM) FOR 3 YEARS IN LEFT ARM
     Route: 059
     Dates: start: 20181113, end: 20190226
  2. NEXPLANON [Suspect]
     Active Substance: ETONOGESTREL
     Dosage: 1 IMPLANT (68 MILLIGRAM) FOR 3 YEARS, LEFT ARM
     Route: 059
     Dates: start: 20190226

REACTIONS (4)
  - No adverse event [Unknown]
  - Device breakage [Recovered/Resolved]
  - Device dislocation [Recovered/Resolved]
  - Device deployment issue [Recovered/Resolved]

NARRATIVE: CASE EVENT DATE: 20181113
